FAERS Safety Report 25868402 (Version 3)
Quarter: 2025Q4

REPORT INFORMATION
  Report Type: Report from Study
  Country: BR (occurrence: BR)
  Receive Date: 20251001
  Receipt Date: 20251112
  Transmission Date: 20260118
  Serious: Yes (Other)
  Sender: NOVARTIS
  Company Number: BR-002147023-NVSC2024BR198561

PATIENT
  Sex: Female

DRUGS (19)
  1. KISQALI [Suspect]
     Active Substance: RIBOCICLIB SUCCINATE
     Indication: Nodule
     Dosage: 3 DOSAGE FORM
     Route: 065
     Dates: start: 20240927
  2. KISQALI [Suspect]
     Active Substance: RIBOCICLIB SUCCINATE
     Indication: Breast cancer metastatic
     Dosage: 3 DOSAGE FORM, AFTER THE  BREAKFAST
     Route: 065
  3. KISQALI [Suspect]
     Active Substance: RIBOCICLIB SUCCINATE
     Dosage: UNK
     Route: 065
  4. KISQALI [Suspect]
     Active Substance: RIBOCICLIB SUCCINATE
     Dosage: UNK
     Route: 065
  5. KISQALI [Suspect]
     Active Substance: RIBOCICLIB SUCCINATE
     Dosage: UNK
     Route: 065
  6. KISQALI [Suspect]
     Active Substance: RIBOCICLIB SUCCINATE
     Dosage: 600 MG
     Route: 065
  7. KISQALI [Suspect]
     Active Substance: RIBOCICLIB SUCCINATE
     Dosage: 600 MG
     Route: 065
     Dates: start: 20250121
  8. KISQALI [Suspect]
     Active Substance: RIBOCICLIB SUCCINATE
     Dosage: 3 DOSAGE FORM
     Route: 065
     Dates: start: 20250613, end: 20250703
  9. KISQALI [Suspect]
     Active Substance: RIBOCICLIB SUCCINATE
     Dosage: 2 DOSAGE FORM, QD (STARTED THE CURRENT CYCLE)
     Route: 065
     Dates: start: 20250712
  10. KISQALI [Suspect]
     Active Substance: RIBOCICLIB SUCCINATE
     Dosage: 3 TO 2 PILLS
     Route: 065
  11. KISQALI [Suspect]
     Active Substance: RIBOCICLIB SUCCINATE
     Dosage: 2 DOSAGE FORM
     Route: 065
  12. ZOMETA [Suspect]
     Active Substance: ZOLEDRONIC ACID
     Indication: Product used for unknown indication
     Dosage: UNK
     Route: 065
  13. FULVESTRANT [Suspect]
     Active Substance: FULVESTRANT
     Indication: Product used for unknown indication
     Dosage: UNK
     Route: 065
  14. LOSARTAN [Suspect]
     Active Substance: LOSARTAN
     Indication: Product used for unknown indication
     Dosage: 600 MG
     Route: 065
  15. VITAMIN B3 [Suspect]
     Active Substance: NIACIN
     Indication: Product used for unknown indication
     Dosage: UNK
     Route: 065
  16. VITAMIN B12 [Suspect]
     Active Substance: CYANOCOBALAMIN
     Indication: Product used for unknown indication
     Dosage: UNK
     Route: 065
  17. ANASTROZOLE [Suspect]
     Active Substance: ANASTROZOLE
     Indication: Product used for unknown indication
     Dosage: UNK
     Route: 065
  18. FUROSEMIDE [Suspect]
     Active Substance: FUROSEMIDE
     Indication: Product used for unknown indication
     Dosage: UNK
     Route: 065
  19. ANASTROZOLE [Concomitant]
     Active Substance: ANASTROZOLE
     Indication: Product used for unknown indication
     Dosage: UNK
     Route: 065

REACTIONS (36)
  - Blood potassium increased [Unknown]
  - Back pain [Recovered/Resolved]
  - Dysphonia [Unknown]
  - Memory impairment [Unknown]
  - Constipation [Unknown]
  - Pain [Recovered/Resolved]
  - Dysstasia [Recovered/Resolved]
  - Feeling abnormal [Unknown]
  - Burning sensation [Recovered/Resolved]
  - Eye disorder [Unknown]
  - Vein disorder [Unknown]
  - Discomfort [Unknown]
  - Malaise [Recovered/Resolved]
  - Taste disorder [Unknown]
  - Dysgeusia [Unknown]
  - Pruritus [Recovered/Resolved]
  - Rash macular [Recovered/Resolved]
  - Skin mass [Not Recovered/Not Resolved]
  - Fall [Unknown]
  - Dry skin [Recovered/Resolved]
  - Skin exfoliation [Unknown]
  - Skin wound [Recovered/Resolved]
  - Skin irritation [Unknown]
  - Erythema [Recovered/Resolved]
  - Skin burning sensation [Unknown]
  - Diarrhoea [Recovered/Resolved]
  - Dysstasia [Recovered/Resolved]
  - Emotional distress [Unknown]
  - Burning sensation [Recovered/Resolved]
  - Pruritus [Recovered/Resolved]
  - Benign uterine neoplasm [Recovering/Resolving]
  - Wound [Unknown]
  - Diarrhoea [Unknown]
  - Erythema [Recovered/Resolved]
  - Malaise [Unknown]
  - Product dose omission issue [Unknown]
